FAERS Safety Report 20634528 (Version 3)
Quarter: 2022Q3

REPORT INFORMATION
  Report Type: Spontaneous
  Country: DE (occurrence: DE)
  Receive Date: 20220325
  Receipt Date: 20220705
  Transmission Date: 20221027
  Serious: Yes (Other)
  Sender: FDA-Public Use
  Company Number: DE-002147023-NVSC2022DE058229

PATIENT
  Age: 77 Year
  Sex: Female
  Weight: 53 kg

DRUGS (13)
  1. LETROZOLE [Suspect]
     Active Substance: LETROZOLE
     Indication: Hormone receptor positive HER2 negative breast cancer
     Dosage: 2.5 MILLIGRAM, ONCE A DAY (2.5 MG, QD)
     Route: 048
     Dates: start: 20200701
  2. LETROZOLE [Suspect]
     Active Substance: LETROZOLE
     Dosage: UNK
     Route: 065
     Dates: end: 20220227
  3. KISQALI [Suspect]
     Active Substance: RIBOCICLIB
     Indication: Hormone receptor positive HER2 negative breast cancer
     Dosage: 600 MG (SCHEMA 21 DAYS INTAKE, 7 DAYS PAUSE, DAILY DOSE)
     Route: 048
     Dates: start: 20200701, end: 20200714
  4. KISQALI [Suspect]
     Active Substance: RIBOCICLIB
     Dosage: 400 MG (SCHEMA 21 DAYS INTAKE, 7 DAYS PAUSE, DAILY DOSE)
     Route: 048
     Dates: start: 20200729, end: 20200825
  5. KISQALI [Suspect]
     Active Substance: RIBOCICLIB
     Dosage: 400 MG (SCHEMA 21 DAYS INTAKE, 7 DAYS PAUSE, DAILY DOSE)
     Route: 048
     Dates: start: 20200909, end: 20201103
  6. KISQALI [Suspect]
     Active Substance: RIBOCICLIB
     Dosage: 400 MG (SCHEMA 21 DAYS INTAKE, 7 DAYS PAUSE, DAILY DOSE)
     Route: 048
     Dates: start: 20201110, end: 20201207
  7. KISQALI [Suspect]
     Active Substance: RIBOCICLIB
     Dosage: 400 MG (SCHEMA 21 DAYS INTAKE, 7 DAYS PAUSE, DAILY DOSE)
     Route: 048
     Dates: start: 20201209, end: 20210202
  8. KISQALI [Suspect]
     Active Substance: RIBOCICLIB
     Dosage: 400 MG (SCHEMA 21 DAYS INTAKE, 7 DAYS PAUSE, DAILY DOSE)
     Route: 048
     Dates: start: 20210217, end: 20210928
  9. KISQALI [Suspect]
     Active Substance: RIBOCICLIB
     Dosage: 400 MG (SCHEMA 21 DAYS INTAKE, 7 DAYS PAUSE, DAILY DOSE)
     Route: 048
     Dates: start: 20211117, end: 20211214
  10. KISQALI [Suspect]
     Active Substance: RIBOCICLIB
     Dosage: 400 MG (SCHEMA 21 DAYS INTAKE, 7 DAYS PAUSE, DAILY DOSE)
     Route: 048
     Dates: start: 20211222, end: 20220215
  11. KISQALI [Suspect]
     Active Substance: RIBOCICLIB
     Dosage: 400 MG (SCHEMA 21 DAYS INTAKE, 7 DAYS PAUSE, DAILY DOSE)
     Route: 048
     Dates: start: 20220310
  12. KISQALI [Suspect]
     Active Substance: RIBOCICLIB
     Dosage: UNK
  13. KISQALI [Suspect]
     Active Substance: RIBOCICLIB
     Dosage: UNK

REACTIONS (2)
  - Electrocardiogram QT prolonged [Recovered/Resolved]
  - Cardiac failure [Unknown]

NARRATIVE: CASE EVENT DATE: 20220228
